FAERS Safety Report 16724368 (Version 1)
Quarter: 2019Q3

REPORT INFORMATION
  Report Type: Spontaneous
  Country: AR (occurrence: AR)
  Receive Date: 20190821
  Receipt Date: 20190821
  Transmission Date: 20191005
  Serious: Yes (Hospitalization, Other)
  Sender: FDA-Public Use
  Company Number: AR-PFIZER INC-2019356505

PATIENT
  Age: 50 Year
  Sex: Female

DRUGS (1)
  1. SUTENT [Suspect]
     Active Substance: SUNITINIB MALATE
     Indication: METASTATIC RENAL CELL CARCINOMA
     Dosage: 50 MG, DAILY
     Dates: start: 20140923

REACTIONS (6)
  - Fall [Unknown]
  - Spinal fracture [Unknown]
  - Seizure [Unknown]
  - Hip fracture [Unknown]
  - Muscular weakness [Unknown]
  - Mental impairment [Unknown]

NARRATIVE: CASE EVENT DATE: 201903
